FAERS Safety Report 5568071-7 (Version None)
Quarter: 2007Q4

REPORT INFORMATION
  Report Type: 
  Country: None (occurrence: None)
  Receive Date: 20071220
  Receipt Date: 20071214
  Transmission Date: 20080405
  Serious: Yes (Hospitalization, Other)
  Sender: FDA-Public Use
  Company Number: FI-NOVOPROD-265805

PATIENT

DRUGS (9)
  1. NOVOSEVEN [Suspect]
     Indication: TRAUMATIC HAEMORRHAGE
     Dosage: 3 DOSES
     Route: 042
     Dates: start: 20070721, end: 20070721
  2. FENTANYL [Concomitant]
     Indication: PAIN
     Dosage: 550 UG, UNK
     Route: 042
     Dates: start: 20070719
  3. KETANEST                           /00171201/ [Concomitant]
     Indication: SEDATIVE THERAPY
     Dosage: 50 MG, UNK
     Route: 042
     Dates: start: 20070719, end: 20070719
  4. STESOLID [Concomitant]
     Indication: SEDATIVE THERAPY
     Dosage: 2.5 MG, UNK
     Route: 042
     Dates: start: 20070719
  5. DALACIN                            /00166002/ [Concomitant]
     Indication: INFECTION PROPHYLAXIS
     Dosage: 600 MG, UNK
     Route: 042
     Dates: start: 20070719
  6. NETILIN [Concomitant]
     Indication: INFECTION PROPHYLAXIS
     Dosage: 300 MG, UNK
     Route: 042
     Dates: start: 20070719
  7. RAPIFEN                            /00109201/ [Concomitant]
     Indication: PAIN
     Dosage: 1 MG, UNK
     Route: 042
     Dates: start: 20070719, end: 20070719
  8. METOCLOPRAMIDE HCL [Concomitant]
     Indication: PROPHYLAXIS OF NAUSEA AND VOMITING
     Dosage: 10 MG, UNK
     Route: 042
     Dates: start: 20070719, end: 20070719
  9. ALFENTANYL [Concomitant]

REACTIONS (1)
  - FAT EMBOLISM [None]
